FAERS Safety Report 25860998 (Version 1)
Quarter: 2025Q3

REPORT INFORMATION
  Report Type: Spontaneous
  Country: US (occurrence: US)
  Receive Date: 20250929
  Receipt Date: 20250929
  Transmission Date: 20251020
  Serious: No
  Sender: SANOFI AVENTIS
  Company Number: US-SA-2025SA289695

PATIENT
  Age: 57 Year
  Sex: Female

DRUGS (2)
  1. DUPIXENT [Suspect]
     Active Substance: DUPILUMAB
     Indication: Dermatitis atopic
     Dosage: 15 MG, QD
     Route: 048
     Dates: start: 20250515
  2. RINVOQ [Concomitant]
     Active Substance: UPADACITINIB

REACTIONS (7)
  - Urinary tract infection [Unknown]
  - Micturition urgency [Unknown]
  - Pollakiuria [Unknown]
  - Urine odour abnormal [Unknown]
  - Incorrect dose administered [Unknown]
  - Inappropriate schedule of product administration [Unknown]
  - Incorrect route of product administration [Unknown]

NARRATIVE: CASE EVENT DATE: 20250101
